FAERS Safety Report 5167097-5 (Version None)
Quarter: 2006Q4

REPORT INFORMATION
  Report Type: 
  Country: None (occurrence: None)
  Receive Date: 20061207
  Receipt Date: 20061201
  Transmission Date: 20070319
  Serious: Yes (Other)
  Sender: FDA-Public Use
  Company Number: US-GLAXOSMITHKLINE-A0630655A

PATIENT
  Age: 44 Year
  Sex: Male
  Weight: 74.3 kg

DRUGS (6)
  1. LEXIVA [Suspect]
     Indication: HIV INFECTION
     Dosage: 1400MG PER DAY
     Route: 048
     Dates: start: 20050916, end: 20061130
  2. NORVIR [Suspect]
     Indication: HIV INFECTION
     Dosage: 200MG PER DAY
     Route: 048
     Dates: start: 20050916, end: 20061130
  3. EPZICOM [Suspect]
     Indication: HIV INFECTION
     Route: 048
     Dates: start: 20050916, end: 20061130
  4. ALBUTEROL [Concomitant]
     Route: 055
     Dates: start: 20050929
  5. MEGACE [Concomitant]
     Dates: start: 20051101
  6. ANDRODERM [Concomitant]
     Dates: start: 20050909

REACTIONS (1)
  - DIABETES MELLITUS NON-INSULIN-DEPENDENT [None]
